FAERS Safety Report 4710613-5 (Version None)
Quarter: 2005Q3

REPORT INFORMATION
  Report Type: 
  Country: None (occurrence: None)
  Receive Date: 20050711
  Receipt Date: 20050601
  Transmission Date: 20060218
  Serious: Yes (Other)
  Sender: FDA-Public Use
  Company Number: PHBS2005IE07820

PATIENT
  Age: 42 Year
  Sex: Female

DRUGS (2)
  1. LIORESAL [Suspect]
     Indication: MULTIPLE SCLEROSIS
     Route: 048
  2. LITHIUM [Concomitant]

REACTIONS (3)
  - ASTHENIA [None]
  - BRADYCARDIA [None]
  - SYNCOPE [None]
